FAERS Safety Report 17687757 (Version 1)
Quarter: 2020Q2

REPORT INFORMATION
  Report Type: Spontaneous
  Country: US (occurrence: US)
  Receive Date: 20200417
  Receipt Date: 20200417
  Transmission Date: 20200714
  Serious: Yes (Life-Threatening, Hospitalization)
  Sender: FDA-Public Use
  Company Number: None

PATIENT
  Age: 63 Year
  Sex: Male
  Weight: 110.22 kg

DRUGS (1)
  1. WARFARIN (WARFARIN NA (EXELAN) 5MG TAB) [Suspect]
     Active Substance: WARFARIN SODIUM
     Route: 048
     Dates: start: 20180516, end: 20190420

REACTIONS (1)
  - Haemorrhage [None]

NARRATIVE: CASE EVENT DATE: 20190410
